FAERS Safety Report 8273588-0 (Version None)
Quarter: 2012Q2

REPORT INFORMATION
  Report Type: 
  Country: None (occurrence: None)
  Receive Date: 20120411
  Receipt Date: 20120124
  Transmission Date: 20120825
  Serious: No
  Sender: FDA-Public Use
  Company Number: US-TEVA-319005USA

PATIENT
  Sex: Female
  Weight: 68.1 kg

DRUGS (4)
  1. NUVIGIL [Suspect]
     Indication: SLEEP APNOEA SYNDROME
     Dosage: QAM
     Route: 048
     Dates: start: 20111122
  2. PREGABALIN [Concomitant]
     Indication: RESTLESS LEGS SYNDROME
     Dosage: QHS
     Route: 048
  3. CITALOPRAM HYDROBROMIDE [Concomitant]
     Indication: DEPRESSION
     Dosage: QPM
     Route: 048
  4. NORLESTRIN FE [Concomitant]
     Indication: ORAL CONTRACEPTION
     Dosage: QD
     Route: 048

REACTIONS (2)
  - MIDDLE INSOMNIA [None]
  - INAPPROPRIATE SCHEDULE OF DRUG ADMINISTRATION [None]
